FAERS Safety Report 12213461 (Version 1)
Quarter: 2016Q1

REPORT INFORMATION
  Report Type: Other
  Country: DE (occurrence: DE)
  Receive Date: 20160328
  Receipt Date: 20160328
  Transmission Date: 20160526
  Serious: Yes (Hospitalization)
  Sender: FDA-Public Use
  Company Number: DE-LUPIN PHARMACEUTICALS INC.-E2B_00005116

PATIENT
  Age: 80 Year
  Sex: Male

DRUGS (1)
  1. SIMVASTATIN. [Suspect]
     Active Substance: SIMVASTATIN
     Indication: CORONARY ARTERY DISEASE
     Route: 048
     Dates: start: 2010

REACTIONS (2)
  - Tendon rupture [Recovering/Resolving]
  - Tendon operation [Unknown]

NARRATIVE: CASE EVENT DATE: 20151120
